FAERS Safety Report 5501273-4 (Version None)
Quarter: 2007Q4

REPORT INFORMATION
  Report Type: 
  Country: None (occurrence: None)
  Receive Date: 20071029
  Receipt Date: 20071022
  Transmission Date: 20080405
  Serious: Yes (Hospitalization, Other)
  Sender: FDA-Public Use
  Company Number: FR-MERCK-0710FRA00058

PATIENT
  Age: 48 Year
  Sex: Female

DRUGS (11)
  1. ZOCOR [Suspect]
     Indication: HYPERCHOLESTEROLAEMIA
     Route: 048
  2. DARBEPOETIN ALFA [Concomitant]
     Route: 051
  3. ALLOPURINOL [Concomitant]
     Indication: HYPERURICAEMIA
     Route: 048
  4. ASPIRIN LYSINE [Concomitant]
     Route: 048
  5. SODIUM POLYSTYRENE SULFONATE [Concomitant]
     Route: 048
  6. BETAXOLOL HYDROCHLORIDE [Concomitant]
     Route: 048
  7. RAMIPRIL [Concomitant]
     Indication: HYPERTENSION
     Route: 048
  8. CYANOCOBALAMIN [Concomitant]
     Route: 048
  9. CLARITHROMYCIN [Suspect]
     Indication: MYCOBACTERIUM AVIUM COMPLEX INFECTION
     Route: 048
  10. ETHAMBUTOL HYDROCHLORIDE [Concomitant]
     Indication: MYCOBACTERIUM AVIUM COMPLEX INFECTION
     Route: 048
  11. RIFABUTIN [Concomitant]
     Indication: MYCOBACTERIUM AVIUM COMPLEX INFECTION
     Route: 048

REACTIONS (4)
  - DRUG INTERACTION [None]
  - MYCOBACTERIUM AVIUM COMPLEX INFECTION [None]
  - RENAL FAILURE ACUTE [None]
  - RHABDOMYOLYSIS [None]
